FAERS Safety Report 16041502 (Version 1)
Quarter: 2019Q1

REPORT INFORMATION
  Report Type: Spontaneous
  Country: US (occurrence: US)
  Receive Date: 20190306
  Receipt Date: 20190306
  Transmission Date: 20190418
  Serious: No
  Sender: FDA-Public Use
  Company Number: US-AKORN PHARMACEUTICALS-2019AKN00035

PATIENT
  Age: 16 Year
  Sex: Female
  Weight: 57.6 kg

DRUGS (1)
  1. MYORISAN [Suspect]
     Active Substance: ISOTRETINOIN
     Indication: ACNE
     Dosage: 20 MG, 1X/DAY
     Dates: start: 20180827, end: 20190103

REACTIONS (8)
  - Lip dry [Unknown]
  - Dry eye [Unknown]
  - Arthralgia [Unknown]
  - Nasal dryness [Unknown]
  - Off label use [Recovered/Resolved]
  - Haemorrhage [Unknown]
  - Night blindness [Unknown]
  - Dry skin [Unknown]

NARRATIVE: CASE EVENT DATE: 2018
